FAERS Safety Report 17971716 (Version 3)
Quarter: 2020Q3

REPORT INFORMATION
  Report Type: Spontaneous
  Country: US (occurrence: US)
  Receive Date: 20200702
  Receipt Date: 20200805
  Transmission Date: 20201103
  Serious: No
  Sender: FDA-Public Use
  Company Number: US-TEVA-2020-US-1793816

PATIENT
  Age: 52 Year
  Sex: Female

DRUGS (1)
  1. ESZOPICLONE TEVA [Suspect]
     Active Substance: ESZOPICLONE
     Indication: INSOMNIA
     Route: 065
     Dates: start: 2016

REACTIONS (2)
  - Product quality issue [Unknown]
  - Drug ineffective [Unknown]

NARRATIVE: CASE EVENT DATE: 202003
